FAERS Safety Report 12601491 (Version 2)
Quarter: 2016Q3

REPORT INFORMATION
  Report Type: Spontaneous
  Country: JP (occurrence: JP)
  Receive Date: 20160728
  Receipt Date: 20160805
  Transmission Date: 20161109
  Serious: Yes (Hospitalization, Other)
  Sender: FDA-Public Use
  Company Number: JP-BRISTOL-MYERS SQUIBB COMPANY-BMS-2016-062177

PATIENT
  Age: 8 Decade

DRUGS (2)
  1. DACLATASVIR DIHYDROCHLORIDE [Suspect]
     Active Substance: DACLATASVIR DIHYDROCHLORIDE
     Indication: HEPATITIS C
     Route: 065
  2. ASUNAPREVIR [Suspect]
     Active Substance: ASUNAPREVIR
     Indication: HEPATITIS C
     Route: 065

REACTIONS (1)
  - Cerebral infarction [Unknown]
